FAERS Safety Report 13756586 (Version 4)
Quarter: 2017Q3

REPORT INFORMATION
  Report Type: Spontaneous
  Country: FR (occurrence: FR)
  Receive Date: 20170714
  Receipt Date: 20170927
  Transmission Date: 20171127
  Serious: Yes (Hospitalization, Other)
  Sender: FDA-Public Use
  Company Number: FR-PFIZER INC-2017299417

PATIENT
  Age: 17 Year
  Sex: Female

DRUGS (10)
  1. VINCRISTINE SULFATE. [Suspect]
     Active Substance: VINCRISTINE SULFATE
     Indication: ACUTE LYMPHOCYTIC LEUKAEMIA
     Dosage: 2 MG, CYCLIC (4 INJECTIONS)
     Route: 042
     Dates: start: 20170526, end: 20170616
  2. VANCOMYCIN [Concomitant]
     Active Substance: VANCOMYCIN
     Dosage: UNK
     Dates: start: 20170617
  3. METHOTREXATE (METHOTREXATE SODIUM) [Suspect]
     Active Substance: METHOTREXATE SODIUM
     Dosage: 15 MG, CYCLIC
     Route: 037
     Dates: start: 20170531, end: 20170531
  4. ONCASPAR [Suspect]
     Active Substance: PEGASPARGASE
     Indication: ACUTE LYMPHOCYTIC LEUKAEMIA
     Dosage: 4.13 KIU, CYCLIC (2 INJECTIONS )
     Route: 042
     Dates: start: 20170530, end: 20170613
  5. HYDROCORTANCYL /00016201/ [Suspect]
     Active Substance: PREDNISONE
     Indication: ACUTE LYMPHOCYTIC LEUKAEMIA
     Dosage: 15 MG, CYCLIC (2 INJECTIONS )
     Route: 037
     Dates: start: 20170531, end: 20170612
  6. DAUNOXOME [Suspect]
     Active Substance: DAUNORUBICIN CITRATE
     Indication: ACUTE LYMPHOCYTIC LEUKAEMIA
     Dosage: 50 MG, CYCLIC (4 INJECTIONS )
     Route: 042
     Dates: start: 20170526, end: 20170616
  7. PIPERACILLIN/TAZOBACTAM [Concomitant]
     Active Substance: PIPERACILLIN SODIUM\TAZOBACTAM SODIUM
     Dosage: UNK
     Dates: start: 20170617
  8. AMIKACIN [Concomitant]
     Active Substance: AMIKACIN
     Dosage: UNK
     Dates: start: 20170617
  9. METHOTREXATE (METHOTREXATE SODIUM) [Suspect]
     Active Substance: METHOTREXATE SODIUM
     Indication: ACUTE LYMPHOCYTIC LEUKAEMIA
     Dosage: 15 MG, CYCLIC
     Route: 037
     Dates: start: 20170516, end: 20170516
  10. CYTARABIN KABI [Suspect]
     Active Substance: CYTARABINE
     Indication: ACUTE LYMPHOCYTIC LEUKAEMIA
     Dosage: 30 MG, CYCLIC (2 INJECTIONS )
     Route: 037
     Dates: start: 20170531, end: 20170612

REACTIONS (8)
  - Pyrexia [Unknown]
  - Septic shock [Unknown]
  - Posterior reversible encephalopathy syndrome [Recovered/Resolved]
  - Hypotension [Unknown]
  - Febrile bone marrow aplasia [Unknown]
  - Pharyngeal inflammation [Unknown]
  - Cardiac failure [Unknown]
  - Thrombocytopenia [Unknown]

NARRATIVE: CASE EVENT DATE: 20170617
